FAERS Safety Report 11414219 (Version 1)
Quarter: 2015Q3

REPORT INFORMATION
  Report Type: Report from Study
  Country: BR (occurrence: BR)
  Receive Date: 20150824
  Receipt Date: 20150824
  Transmission Date: 20151125
  Serious: Yes (Other)
  Sender: FDA-Public Use
  Company Number: PHHY2015BR101992

PATIENT
  Sex: Male
  Weight: 75 kg

DRUGS (1)
  1. SANDOSTATIN [Suspect]
     Active Substance: OCTREOTIDE ACETATE
     Indication: ACROMEGALY
     Dosage: UNK
     Route: 065
     Dates: start: 2010

REACTIONS (4)
  - Mass [Unknown]
  - Pain [Unknown]
  - Gait disturbance [Unknown]
  - Diabetes mellitus [Recovered/Resolved]
